FAERS Safety Report 7037114-6 (Version None)
Quarter: 2010Q4

REPORT INFORMATION
  Report Type: 
  Country: None (occurrence: None)
  Receive Date: 20101011
  Receipt Date: 20101006
  Transmission Date: 20110411
  Serious: Yes (Death)
  Sender: FDA-Public Use
  Company Number: PHHY2010BE66365

PATIENT

DRUGS (1)
  1. ALISKIREN ALI+TAB [Suspect]
     Route: 048

REACTIONS (1)
  - DEATH [None]
